FAERS Safety Report 11340553 (Version 1)
Quarter: 2015Q3

REPORT INFORMATION
  Report Type: Spontaneous
  Country: US (occurrence: US)
  Receive Date: 20150805
  Receipt Date: 20150805
  Transmission Date: 20151125
  Serious: No
  Sender: FDA-Public Use
  Company Number: US-BAYER-2015-387660

PATIENT
  Age: 59 Year
  Sex: Female
  Weight: 55.78 kg

DRUGS (4)
  1. CLIMARA [Suspect]
     Active Substance: ESTRADIOL
     Dosage: 0.1 MG/24HR, OW
     Route: 062
     Dates: start: 2014
  2. PLAQUENIL [Concomitant]
     Active Substance: HYDROXYCHLOROQUINE SULFATE
     Indication: CHRONIC CUTANEOUS LUPUS ERYTHEMATOSUS
     Dosage: 200 MG, BID
     Route: 048
     Dates: start: 2012
  3. LEFLUNOMIDE. [Concomitant]
     Active Substance: LEFLUNOMIDE
     Indication: CHRONIC CUTANEOUS LUPUS ERYTHEMATOSUS
     Dosage: 10 MG, ONCE
     Route: 048
     Dates: start: 2013
  4. CLONIDINE. [Concomitant]
     Active Substance: CLONIDINE
     Indication: NIGHT SWEATS
     Dosage: 0.1 MG SIS DAY, UNK
     Route: 048
     Dates: start: 2014

REACTIONS (2)
  - Product adhesion issue [None]
  - Application site rash [Not Recovered/Not Resolved]

NARRATIVE: CASE EVENT DATE: 2014
